FAERS Safety Report 16009887 (Version 2)
Quarter: 2019Q2

REPORT INFORMATION
  Report Type: Spontaneous
  Country: US (occurrence: US)
  Receive Date: 20190225
  Receipt Date: 20190523
  Transmission Date: 20190711
  Serious: Yes (Other)
  Sender: FDA-Public Use
  Company Number: US-ASTRAZENECA-2018SF34042

PATIENT
  Age: 73 Year
  Sex: Male
  Weight: 111.1 kg

DRUGS (27)
  1. NEXIUM [Suspect]
     Active Substance: ESOMEPRAZOLE MAGNESIUM
     Indication: GASTROOESOPHAGEAL REFLUX DISEASE
     Route: 048
     Dates: start: 2005, end: 2017
  2. NEXIUM [Suspect]
     Active Substance: ESOMEPRAZOLE MAGNESIUM
     Indication: GASTROOESOPHAGEAL REFLUX DISEASE
     Route: 048
     Dates: start: 2005, end: 2016
  3. NEXIUM [Suspect]
     Active Substance: ESOMEPRAZOLE MAGNESIUM
     Indication: GASTROOESOPHAGEAL REFLUX DISEASE
     Dosage: GENERIC
     Route: 048
     Dates: start: 2016
  4. PEPCID [Concomitant]
     Active Substance: FAMOTIDINE
  5. OLMESARTAN [Concomitant]
     Active Substance: OLMESARTAN
     Indication: BLOOD PRESSURE MEASUREMENT
  6. DOXYCYCLINE. [Concomitant]
     Active Substance: DOXYCYCLINE
  7. PREDNISONE. [Concomitant]
     Active Substance: PREDNISONE
  8. TOBRAMYCIN. [Concomitant]
     Active Substance: TOBRAMYCIN
  9. CLINDAMYCIN. [Concomitant]
     Active Substance: CLINDAMYCIN
     Indication: TOOTH DISORDER
  10. VITAMIN D [Concomitant]
     Active Substance: VITAMIN D NOS
  11. LATANOPROST. [Concomitant]
     Active Substance: LATANOPROST
  12. AMILORIDE [Concomitant]
     Active Substance: AMILORIDE
  13. LOPRESSOR [Concomitant]
     Active Substance: METOPROLOL TARTRATE
     Indication: BLOOD PRESSURE MEASUREMENT
  14. IRBESARTAN. [Concomitant]
     Active Substance: IRBESARTAN
     Indication: BLOOD PRESSURE MEASUREMENT
  15. ASPIRIN. [Concomitant]
     Active Substance: ASPIRIN
     Indication: CARDIAC DISORDER
  16. SIMVASTATIN. [Concomitant]
     Active Substance: SIMVASTATIN
  17. VITAMIN C [Concomitant]
     Active Substance: ASCORBIC ACID
  18. LUMIGAN [Concomitant]
     Active Substance: BIMATOPROST
  19. VITAMIN B NOS [Concomitant]
     Active Substance: VITAMIN B
  20. PREVACID [Suspect]
     Active Substance: LANSOPRAZOLE
     Indication: GASTROOESOPHAGEAL REFLUX DISEASE
     Dosage: DAILY
     Route: 065
     Dates: start: 1999
  21. AMILORIDE [Concomitant]
     Active Substance: AMILORIDE
     Indication: BLOOD PRESSURE MEASUREMENT
  22. CIALIS [Concomitant]
     Active Substance: TADALAFIL
  23. VIIBRYD [Concomitant]
     Active Substance: VILAZODONE HYDROCHLORIDE
     Indication: ANXIETY
  24. CHLORTHALIDONE. [Concomitant]
     Active Substance: CHLORTHALIDONE
  25. ATIVAN [Concomitant]
     Active Substance: LORAZEPAM
     Indication: ANXIETY
  26. CHLORTHALIDONE. [Concomitant]
     Active Substance: CHLORTHALIDONE
  27. LATANOPROST. [Concomitant]
     Active Substance: LATANOPROST
     Indication: GLAUCOMA

REACTIONS (3)
  - Renal impairment [Unknown]
  - Chronic kidney disease [Not Recovered/Not Resolved]
  - Renal failure [Unknown]

NARRATIVE: CASE EVENT DATE: 2016
